FAERS Safety Report 8489484-X (Version None)
Quarter: 2012Q3

REPORT INFORMATION
  Report Type: 
  Country: None (occurrence: None)
  Receive Date: 20120705
  Receipt Date: 20120629
  Transmission Date: 20120928
  Serious: No
  Sender: FDA-Public Use
  Company Number: US-PFIZER INC-2012138794

PATIENT
  Sex: Female
  Weight: 54.422 kg

DRUGS (2)
  1. VFEND [Suspect]
     Indication: LUNG INFECTION
     Dosage: 200 MG, 2X/DAY
     Dates: start: 20091001, end: 20101001
  2. AUGMENTIN '125' [Concomitant]
     Indication: PROPHYLAXIS
     Dosage: UNK

REACTIONS (1)
  - PHOTOSENSITIVITY REACTION [None]
